FAERS Safety Report 5794580-1 (Version None)
Quarter: 2008Q2

REPORT INFORMATION
  Report Type: 
  Country: None (occurrence: None)
  Receive Date: 20080625
  Receipt Date: 20080610
  Transmission Date: 20081010
  Serious: Yes (Other)
  Sender: FDA-Public Use
  Company Number: JPI-P-003716

PATIENT
  Age: 31 Year
  Sex: Female

DRUGS (3)
  1. LUVOX [Suspect]
     Indication: DEPRESSION
     Dosage: (100 MG, 1 D), ORAL
     Route: 048
     Dates: start: 20080101
  2. METHADONE HCL [Suspect]
     Indication: DRUG DEPENDENCE
     Dosage: (8 MG, 1 D); (16 MG, 1 D)
     Dates: start: 20070901
  3. METHADONE HCL [Suspect]
     Indication: HEPATITIS C
     Dosage: (8 MG, 1 D); (16 MG, 1 D)
     Dates: start: 20070901

REACTIONS (3)
  - CLONUS [None]
  - DRUG INTERACTION [None]
  - MUSCLE SPASTICITY [None]
